FAERS Safety Report 17131144 (Version 3)
Quarter: 2020Q2

REPORT INFORMATION
  Report Type: Report from Study
  Country: US (occurrence: US)
  Receive Date: 20191209
  Receipt Date: 20200611
  Transmission Date: 20200713
  Serious: Yes (Hospitalization)
  Sender: FDA-Public Use
  Company Number: US-ACTELION-A-NJ2019-199043

PATIENT
  Age: 72 Year
  Sex: Female
  Weight: 136.05 kg

DRUGS (1)
  1. OPSUMIT [Suspect]
     Active Substance: MACITENTAN
     Indication: PULMONARY ARTERIAL HYPERTENSION
     Dosage: 10 MG, QD
     Route: 048
     Dates: start: 201503

REACTIONS (6)
  - Cardiac failure congestive [Recovered/Resolved]
  - Blood count abnormal [Unknown]
  - Left ventricular failure [Recovered/Resolved]
  - Renal disorder [Unknown]
  - Herpes zoster [Unknown]
  - Fluid retention [Unknown]

NARRATIVE: CASE EVENT DATE: 20200519
